FAERS Safety Report 9152718 (Version 1)
Quarter: 2013Q1

REPORT INFORMATION
  Report Type: Spontaneous
  Country: FR (occurrence: FR)
  Receive Date: 20130308
  Receipt Date: 20130308
  Transmission Date: 20140127
  Serious: Yes (Hospitalization, Other)
  Sender: FDA-Public Use
  Company Number: FR-009507513-1303FRA000254

PATIENT
  Age: 71 Year
  Sex: Male

DRUGS (1)
  1. TEMODAL [Suspect]
     Indication: GLIOBLASTOMA
     Dosage: 150 MG, QD
     Route: 048
     Dates: start: 20121220, end: 20130207

REACTIONS (2)
  - Agranulocytosis [Recovered/Resolved]
  - Eosinophilia [Recovered/Resolved]
